FAERS Safety Report 6840798-6 (Version None)
Quarter: 2010Q3

REPORT INFORMATION
  Report Type: 
  Country: None (occurrence: None)
  Receive Date: 20100714
  Receipt Date: 20100707
  Transmission Date: 20110219
  Serious: Yes (Hospitalization)
  Sender: FDA-Public Use
  Company Number: PHHO2010GB10247

PATIENT
  Sex: Female
  Weight: 83 kg

DRUGS (5)
  1. BLINDED ENALAPRIL COMP-ENA+ [Suspect]
     Indication: CARDIAC FAILURE CHRONIC
     Dosage: UNK
  2. BLINDED LCZ696 LCZ+TAB [Suspect]
     Indication: CARDIAC FAILURE CHRONIC
     Dosage: UNK
  3. BLINDED NO TREATMENT RECEIVED NOMED [Suspect]
     Indication: CARDIAC FAILURE CHRONIC
     Dosage: UNK
  4. BISOPROLOL [Concomitant]
     Indication: CARDIAC FAILURE
  5. BISOPROLOL [Concomitant]
     Indication: PALPITATIONS

REACTIONS (3)
  - DISEASE PROGRESSION [None]
  - PALPITATIONS [None]
  - SUPRAVENTRICULAR TACHYCARDIA [None]
